FAERS Safety Report 14911756 (Version 1)
Quarter: 2018Q2

REPORT INFORMATION
  Report Type: Spontaneous
  Country: FR (occurrence: FR)
  Receive Date: 20180518
  Receipt Date: 20180518
  Transmission Date: 20180711
  Serious: Yes (Other)
  Sender: FDA-Public Use
  Company Number: FR-MERCK KGAA-2048036

PATIENT
  Age: 66 Year
  Sex: Female

DRUGS (1)
  1. NOVOTHYROX [Suspect]
     Active Substance: LEVOTHYROXINE SODIUM
     Indication: PRODUCT USED FOR UNKNOWN INDICATION
     Dates: start: 201705, end: 201710

REACTIONS (23)
  - Pain [Recovering/Resolving]
  - Pain in extremity [Recovering/Resolving]
  - Respiratory disorder [Recovering/Resolving]
  - Diarrhoea [Recovering/Resolving]
  - Blood glucose decreased [None]
  - Uterine haemorrhage [Recovering/Resolving]
  - Feeling jittery [Recovering/Resolving]
  - Affect lability [Recovering/Resolving]
  - Asthma [Recovering/Resolving]
  - Personal relationship issue [Recovering/Resolving]
  - Blood pressure fluctuation [Recovering/Resolving]
  - Social problem [Recovering/Resolving]
  - Memory impairment [Not Recovered/Not Resolved]
  - Fatigue [Recovering/Resolving]
  - Gait disturbance [Recovering/Resolving]
  - Blood cholesterol increased [None]
  - Loss of personal independence in daily activities [Recovering/Resolving]
  - Abdominal pain upper [Recovering/Resolving]
  - Irritability [Recovering/Resolving]
  - Myalgia [Recovering/Resolving]
  - Gastrointestinal pain [Recovering/Resolving]
  - Alopecia [Recovering/Resolving]
  - Headache [Recovering/Resolving]

NARRATIVE: CASE EVENT DATE: 2017
